FAERS Safety Report 4365577-3 (Version None)
Quarter: 2004Q2

REPORT INFORMATION
  Report Type: 
  Country: None (occurrence: None)
  Receive Date: 20040526
  Receipt Date: 20040422
  Transmission Date: 20050107
  Serious: Yes (Hospitalization)
  Sender: FDA-Public Use
  Company Number: DE-ROCHE-365051

PATIENT
  Age: 62 Year
  Sex: Female
  Weight: 55 kg

DRUGS (5)
  1. CAPECITABINE [Suspect]
     Route: 048
     Dates: start: 20040415
  2. IRINOTECAN [Suspect]
     Route: 042
     Dates: start: 20040415
  3. CELECOXIB [Suspect]
     Route: 048
     Dates: start: 20040415
  4. PREDNISONE [Concomitant]
     Dates: start: 20040417, end: 20040422
  5. OMEPRAZOLE [Concomitant]
     Dates: start: 20040418, end: 20040422

REACTIONS (2)
  - AMAUROSIS [None]
  - CEREBRAL INFARCTION [None]
